FAERS Safety Report 19276995 (Version 2)
Quarter: 2021Q3

REPORT INFORMATION
  Report Type: Report from Study
  Country: GB (occurrence: GB)
  Receive Date: 20210519
  Receipt Date: 20210713
  Transmission Date: 20211014
  Serious: Yes (Hospitalization, Other)
  Sender: FDA-Public Use
  Company Number: GB-JNJFOC-20210505921

PATIENT
  Age: 49 Year
  Sex: Male

DRUGS (2)
  1. STELARA [Suspect]
     Active Substance: USTEKINUMAB
     Indication: PSORIASIS
     Route: 058
  2. STELARA [Suspect]
     Active Substance: USTEKINUMAB

REACTIONS (5)
  - Psoriasis [Unknown]
  - Hospitalisation [Unknown]
  - Upper limb fracture [Unknown]
  - Fall [Unknown]
  - Product prescribing error [Unknown]

NARRATIVE: CASE EVENT DATE: 2021
